FAERS Safety Report 8215293-2 (Version None)
Quarter: 2012Q1

REPORT INFORMATION
  Report Type: 
  Country: None (occurrence: None)
  Receive Date: 20120316
  Receipt Date: 20120309
  Transmission Date: 20120608
  Serious: Yes (Other)
  Sender: FDA-Public Use
  Company Number: GB-B.I. PHARMACEUTICALS,INC./RIDGEFIELD-2012-UK-00322UK

PATIENT
  Sex: Male
  Weight: 69.9 kg

DRUGS (8)
  1. PPI [Concomitant]
  2. BECONASE AQUEOUS [Concomitant]
     Dosage: 4 PUF
     Route: 045
  3. PRADAXA [Suspect]
  4. BISOPROLOL FUMARATE [Concomitant]
     Dosage: 10 MG
  5. CO-BENELDOPA [Concomitant]
     Dosage: 25MG/100MG
  6. FERROUS FUMARATE [Concomitant]
     Dosage: 630 MG
  7. CO-BENELDOPA [Concomitant]
     Dosage: 1 ANZ
  8. EPADERM OINTMENT [Concomitant]

REACTIONS (7)
  - VOMITING [None]
  - SOMNOLENCE [None]
  - DYSPEPSIA [None]
  - GASTROINTESTINAL DISORDER [None]
  - FALL [None]
  - ABDOMINAL PAIN [None]
  - DIZZINESS [None]
